FAERS Safety Report 25445869 (Version 2)
Quarter: 2025Q3

REPORT INFORMATION
  Report Type: Spontaneous
  Country: US (occurrence: US)
  Receive Date: 20250617
  Receipt Date: 20250810
  Transmission Date: 20251021
  Serious: No
  Sender: ALEXION PHARMACEUTICALS
  Company Number: 202506USA008767US

PATIENT
  Sex: Female

DRUGS (14)
  1. FASLODEX [Suspect]
     Active Substance: FULVESTRANT
     Indication: Breast cancer
     Route: 065
  2. FASLODEX [Suspect]
     Active Substance: FULVESTRANT
  3. IBRANCE [Suspect]
     Active Substance: PALBOCICLIB
     Dosage: 125 MILLIGRAM, QD FOR 21 DAYS, 7 DAYS OFF
     Dates: start: 20250426
  4. METOPROLOL [Concomitant]
     Active Substance: METOPROLOL
  5. ASPIRIN [Concomitant]
     Active Substance: ASPIRIN
  6. POTASSIUM [Concomitant]
     Active Substance: POTASSIUM
  7. PRISTIQ EXTENDED-RELEASE [Concomitant]
     Active Substance: DESVENLAFAXINE SUCCINATE
  8. LAMICTAL [Concomitant]
     Active Substance: LAMOTRIGINE
  9. ATORVASTATIN [Concomitant]
     Active Substance: ATORVASTATIN
  10. PHESGO [Concomitant]
     Active Substance: HYALURONIDASE-ZZXF\PERTUZUMAB\TRASTUZUMAB
  11. COMPAZINE [Concomitant]
     Active Substance: PROCHLORPERAZINE MALEATE
  12. ZOFRAN [Concomitant]
     Active Substance: ONDANSETRON HYDROCHLORIDE
  13. FAMOTIDINE [Concomitant]
     Active Substance: FAMOTIDINE
  14. FLEXERIL [Suspect]
     Active Substance: CYCLOBENZAPRINE HYDROCHLORIDE

REACTIONS (2)
  - Rash [Unknown]
  - Breast pain [Unknown]
